FAERS Safety Report 4383308-8 (Version None)
Quarter: 2004Q2

REPORT INFORMATION
  Report Type: 
  Country: None (occurrence: None)
  Receive Date: 20040618
  Receipt Date: 20040604
  Transmission Date: 20050107
  Serious: Yes (Hospitalization)
  Sender: FDA-Public Use
  Company Number: RENA-11029

PATIENT
  Age: 54 Year
  Sex: Male

DRUGS (10)
  1. PHOSBLOCK- 250 MG TABLET [Suspect]
     Indication: HYPERPHOSPHATAEMIA
     Dosage: 3 G QD PO
     Route: 048
     Dates: start: 20030630, end: 20040303
  2. ESTAZOLAM [Concomitant]
  3. METHYL SALICYLATE [Concomitant]
  4. LOXOPROFEN SODIUM [Concomitant]
  5. PLAUNOTOL [Concomitant]
  6. OMEPRAZOLE [Concomitant]
  7. EPOETIN ALPHA [Concomitant]
  8. CALCITRIOL [Concomitant]
  9. MONOAMMONIUM GLYCYRRHIZINATE [Concomitant]
  10. RABBIT SKIN EXTRACT [Concomitant]

REACTIONS (6)
  - ASCITES [None]
  - COMPUTERISED TOMOGRAM ABNORMAL [None]
  - DIVERTICULAR PERFORATION [None]
  - ENTERITIS [None]
  - LARGE INTESTINE PERFORATION [None]
  - PERITONITIS [None]
